FAERS Safety Report 4585641-3 (Version None)
Quarter: 2005Q1

REPORT INFORMATION
  Report Type: 
  Country: None (occurrence: None)
  Receive Date: 20050217
  Receipt Date: 20041209
  Transmission Date: 20050727
  Serious: Yes (Life-Threatening, Hospitalization, Disabling)
  Sender: FDA-Public Use
  Company Number: US-MERCK-0412USA01171

PATIENT
  Age: 80 Year
  Sex: Female

DRUGS (3)
  1. VIOXX [Suspect]
     Indication: MONARTHRITIS
     Route: 048
     Dates: start: 20031121, end: 20031128
  2. VIOXX [Suspect]
     Route: 048
     Dates: start: 20031120, end: 20031120
  3. PROPRANOLOL HYDROCHLORIDE [Concomitant]
     Route: 048

REACTIONS (28)
  - ADVERSE EVENT [None]
  - AORTIC VALVE STENOSIS [None]
  - ATRIAL FIBRILLATION [None]
  - CARDIAC FAILURE CONGESTIVE [None]
  - CORONARY ARTERY ATHEROSCLEROSIS [None]
  - CORONARY ARTERY DISEASE [None]
  - DENTAL CARIES [None]
  - DIVERTICULUM INTESTINAL [None]
  - DIZZINESS [None]
  - DYSPNOEA PAROXYSMAL NOCTURNAL [None]
  - FALL [None]
  - HIP FRACTURE [None]
  - LOSS OF CONSCIOUSNESS [None]
  - MITRAL VALVE INCOMPETENCE [None]
  - MYELOPROLIFERATIVE DISORDER [None]
  - MYOCARDIAL INFARCTION [None]
  - MYOCARDIAL ISCHAEMIA [None]
  - NASAL POLYPS [None]
  - NEPHROLITHIASIS [None]
  - PAIN [None]
  - REFRACTORY ANAEMIA [None]
  - RENAL INFARCT [None]
  - RESTRICTIVE PULMONARY DISEASE [None]
  - SINUSITIS [None]
  - SPLENOMEGALY [None]
  - THROMBOCYTOPENIA [None]
  - UPPER LIMB FRACTURE [None]
  - URINARY TRACT INFECTION [None]
